FAERS Safety Report 23552921 (Version 17)
Quarter: 2025Q1

REPORT INFORMATION
  Report Type: Report from Study
  Country: US (occurrence: US)
  Receive Date: 20240222
  Receipt Date: 20250321
  Transmission Date: 20250408
  Serious: Yes (Hospitalization)
  Sender: TAKEDA
  Company Number: US-TAKEDA-2023TUS109882

PATIENT
  Age: 71 Year
  Sex: Female
  Weight: 84 kg

DRUGS (28)
  1. TEDUGLUTIDE [Suspect]
     Active Substance: TEDUGLUTIDE
     Indication: Short-bowel syndrome
     Dosage: 0.21 MILLILITER, QD
  2. TEDUGLUTIDE [Suspect]
     Active Substance: TEDUGLUTIDE
     Dosage: 0.21 MILLILITER, QD
  3. TEDUGLUTIDE [Suspect]
     Active Substance: TEDUGLUTIDE
     Dosage: 0.21 MILLILITER, QD
  4. TEDUGLUTIDE [Suspect]
     Active Substance: TEDUGLUTIDE
     Dosage: 0.19 MILLILITER, QD
  5. TEDUGLUTIDE [Suspect]
     Active Substance: TEDUGLUTIDE
     Dosage: 0.19 MILLILITER, QD
  6. TEDUGLUTIDE [Suspect]
     Active Substance: TEDUGLUTIDE
     Dosage: 0.19 MILLILITER, QD
  7. TEDUGLUTIDE [Suspect]
     Active Substance: TEDUGLUTIDE
     Dosage: 0.19 MILLILITER, QD
  8. TEDUGLUTIDE [Suspect]
     Active Substance: TEDUGLUTIDE
  9. TEDUGLUTIDE [Suspect]
     Active Substance: TEDUGLUTIDE
  10. TEDUGLUTIDE [Suspect]
     Active Substance: TEDUGLUTIDE
     Dosage: 0.19 MILLILITER, QD
  11. TEDUGLUTIDE [Suspect]
     Active Substance: TEDUGLUTIDE
     Dosage: 0.19 MILLILITER, QD
  12. TEDUGLUTIDE [Suspect]
     Active Substance: TEDUGLUTIDE
     Dosage: 1.83 MILLIGRAM, QD
  13. HYDROCHLOROTHIAZIDE [Concomitant]
     Active Substance: HYDROCHLOROTHIAZIDE
  14. VITAMIN C [Concomitant]
     Active Substance: ASCORBIC ACID
  15. MAGNESIUM [Concomitant]
     Active Substance: MAGNESIUM
  16. VITAMIN D3 [Concomitant]
     Active Substance: CHOLECALCIFEROL
  17. NIFEDIPINE [Concomitant]
     Active Substance: NIFEDIPINE
  18. METOPROLOL [Concomitant]
     Active Substance: METOPROLOL
  19. FUROSEMIDE [Concomitant]
     Active Substance: FUROSEMIDE
  20. VITAMIN B1 [Concomitant]
     Active Substance: THIAMINE HYDROCHLORIDE
  21. COPPER [Concomitant]
     Active Substance: COPPER
  22. VITAMIN B12 [Concomitant]
     Active Substance: CYANOCOBALAMIN
  23. CALCIUM CITRATE [Concomitant]
     Active Substance: CALCIUM CITRATE
  24. VITAMIN D2 [Concomitant]
     Active Substance: ERGOCALCIFEROL
  25. XARELTO [Concomitant]
     Active Substance: RIVAROXABAN
  26. METOPROLOL SUCCINATE [Concomitant]
     Active Substance: METOPROLOL SUCCINATE
  27. VITAMIN A AND D [Concomitant]
     Active Substance: LANOLIN\PETROLATUM
  28. DAPTOMYCIN [Concomitant]
     Active Substance: DAPTOMYCIN

REACTIONS (21)
  - Constipation [Unknown]
  - Colonoscopy abnormal [Unknown]
  - Ageusia [Unknown]
  - Skin burning sensation [Unknown]
  - Hernia [Not Recovered/Not Resolved]
  - Weight decreased [Unknown]
  - Peroneal nerve palsy [Unknown]
  - Tooth loss [Unknown]
  - Malaise [Unknown]
  - Product leakage [Unknown]
  - Device occlusion [Unknown]
  - Incorrect product administration duration [Unknown]
  - Product use issue [Unknown]
  - Product dose omission issue [Unknown]
  - Needle issue [Unknown]
  - Product use complaint [Unknown]
  - Incorrect dose administered [Unknown]
  - Device issue [Unknown]
  - Syringe issue [Unknown]
  - Decreased appetite [Unknown]
  - Injection site pain [Unknown]

NARRATIVE: CASE EVENT DATE: 20230801
